FAERS Safety Report 6126325-X (Version None)
Quarter: 2009Q1

REPORT INFORMATION
  Report Type: 
  Country: None (occurrence: None)
  Receive Date: 20090320
  Receipt Date: 20090312
  Transmission Date: 20090719
  Serious: Yes (Hospitalization)
  Sender: FDA-Public Use
  Company Number: US-AMGEN-QUU338212

PATIENT
  Sex: Female

DRUGS (2)
  1. ENBREL [Suspect]
     Indication: RHEUMATOID ARTHRITIS
     Route: 058
  2. METHOTREXATE [Concomitant]
     Route: 048

REACTIONS (5)
  - ARTHRALGIA [None]
  - JOINT ARTHROPLASTY [None]
  - OEDEMA PERIPHERAL [None]
  - SEPSIS [None]
  - URINARY TRACT INFECTION [None]
